FAERS Safety Report 9018763 (Version 4)
Quarter: 2013Q1

REPORT INFORMATION
  Report Type: Spontaneous
  Country: JP (occurrence: JP)
  Receive Date: 20130118
  Receipt Date: 20130321
  Transmission Date: 20140127
  Serious: Yes (Other)
  Sender: FDA-Public Use
  Company Number: JP-BAYER-2013-006424

PATIENT
  Age: 74 Year
  Sex: Male
  Weight: 64 kg

DRUGS (8)
  1. BAYASPIRIN [Suspect]
     Indication: ANGINA PECTORIS
     Dosage: 100 MG, QD
     Route: 048
  2. PARIET [Concomitant]
     Dosage: UNK
     Route: 048
  3. SIGMART [Concomitant]
     Dosage: UNK
  4. HERBESSER R [Concomitant]
     Dosage: UNK
     Route: 048
  5. LIPITOR [Concomitant]
     Dosage: UNK
     Route: 048
  6. LASIX [Concomitant]
     Dosage: UNK
  7. DIOVAN [Concomitant]
     Dosage: DAILY DOSE 160 MG
     Route: 048
  8. ALFAROL [Concomitant]
     Dosage: UNK
     Route: 048

REACTIONS (2)
  - Gastrointestinal telangiectasia [Recovering/Resolving]
  - Small intestinal haemorrhage [Recovering/Resolving]
